FAERS Safety Report 10281165 (Version 2)
Quarter: 2014Q3

REPORT INFORMATION
  Report Type: Report from Study
  Country: GB (occurrence: GB)
  Receive Date: 20140707
  Receipt Date: 20140714
  Transmission Date: 20150326
  Serious: Yes (Death)
  Sender: FDA-Public Use
  Company Number: PHHO2014GB009340

PATIENT

DRUGS (5)
  1. LANSOPRAZOLE. [Suspect]
     Active Substance: LANSOPRAZOLE
  2. BISOPROLOL [Concomitant]
     Active Substance: BISOPROLOL
  3. ENOXAPARIN [Concomitant]
     Active Substance: ENOXAPARIN
  4. LICARDIPINE [Concomitant]
  5. FUROSEMIDE. [Concomitant]
     Active Substance: FUROSEMIDE

REACTIONS (2)
  - Dyspnoea [Fatal]
  - Tachycardia [Fatal]
